FAERS Safety Report 4457050-9 (Version None)
Quarter: 2004Q3

REPORT INFORMATION
  Report Type: 
  Country: None (occurrence: None)
  Receive Date: 20040923
  Receipt Date: 20040616
  Transmission Date: 20050211
  Serious: Yes (Other)
  Sender: FDA-Public Use
  Company Number: PHBS2004JP08065

PATIENT
  Sex: Male

DRUGS (5)
  1. GLEEVEC [Suspect]
     Indication: GASTROINTESTINAL STROMAL TUMOUR
     Dosage: 400 MG/D
     Route: 048
  2. GLEEVEC [Suspect]
     Dosage: 300 MG/D
     Route: 048
     Dates: end: 20040616
  3. GASTER [Suspect]
     Dosage: 20 MG/D
     Route: 048
  4. NORVASC [Suspect]
     Dosage: 5 MG/D
     Route: 048
  5. LENDORMIN [Suspect]
     Route: 048

REACTIONS (2)
  - CARDIAC DISORDER [None]
  - VENTRICULAR EXTRASYSTOLES [None]
